FAERS Safety Report 11889413 (Version 2)
Quarter: 2016Q1

REPORT INFORMATION
  Report Type: Spontaneous
  Country: IT (occurrence: IT)
  Receive Date: 20160105
  Receipt Date: 20160226
  Transmission Date: 20160526
  Serious: Yes (Hospitalization)
  Sender: FDA-Public Use
  Company Number: IT-SA-2015SA223127

PATIENT
  Age: 49 Year
  Sex: Male

DRUGS (7)
  1. LANSOX [Concomitant]
     Active Substance: LANSOPRAZOLE
     Dosage: STRENGTH 30MG
  2. LANTUS [Suspect]
     Active Substance: INSULIN GLARGINE
     Indication: DIABETES MELLITUS
     Dosage: DOSE:100 UNIT(S)
     Route: 058
     Dates: start: 20150101, end: 20150911
  3. TRIATEC [Concomitant]
     Active Substance: RAMIPRIL
     Dosage: DIVISIBLE TABLETS, STRENGTH 5 MG
  4. IPERTEN [Concomitant]
     Active Substance: MANIDIPINE
     Dosage: STRENGTH 20MG
  5. HUMALOG [Suspect]
     Active Substance: INSULIN LISPRO
     Indication: DIABETES MELLITUS
     Dosage: STRENGTH 100U/ML DOSE:1 UNIT(S)
     Route: 058
     Dates: start: 20150101, end: 20150911
  6. CARDIOASPIRIN [Concomitant]
     Active Substance: ASPIRIN
     Dosage: STRENGTH 100MG
  7. LASIX [Concomitant]
     Active Substance: FUROSEMIDE
     Dosage: STRENGTH 25MG

REACTIONS (2)
  - Loss of consciousness [Unknown]
  - Hyperhidrosis [Unknown]

NARRATIVE: CASE EVENT DATE: 20150911
